FAERS Safety Report 6103026-5 (Version None)
Quarter: 2009Q1

REPORT INFORMATION
  Report Type: 
  Country: None (occurrence: None)
  Receive Date: 20090305
  Receipt Date: 20090304
  Transmission Date: 20090719
  Serious: Yes (Hospitalization)
  Sender: FDA-Public Use
  Company Number: PHHO2005SE14968

PATIENT
  Sex: Male
  Weight: 97.7 kg

DRUGS (3)
  1. LOTREL [Suspect]
     Indication: HYPERTENSION
     Dosage: LEVEL 1
     Route: 048
     Dates: start: 20050509, end: 20050607
  2. LOTREL [Suspect]
     Dosage: LEVEL 2
     Route: 048
     Dates: start: 20050608, end: 20050922
  3. TENORMIN [Suspect]
     Indication: HYPERTENSION
     Dosage: 50 MG, QD
     Dates: end: 20050923

REACTIONS (5)
  - BRADYCARDIA [None]
  - CHEST PAIN [None]
  - CORONARY ARTERY STENOSIS [None]
  - HEART RATE DECREASED [None]
  - HYPOTENSION [None]
